FAERS Safety Report 24607742 (Version 2)
Quarter: 2025Q3

REPORT INFORMATION
  Report Type: Spontaneous
  Country: US (occurrence: US)
  Receive Date: 20241112
  Receipt Date: 20250809
  Transmission Date: 20251020
  Serious: Yes (Other)
  Sender: ALEXION PHARMACEUTICALS
  Company Number: US-ASTRAZENECA-202410USA013157US

PATIENT
  Age: 66 Year
  Sex: Male
  Weight: 85.73 kg

DRUGS (26)
  1. LYNPARZA [Suspect]
     Active Substance: OLAPARIB
  2. VUDALIMAB [Suspect]
     Active Substance: VUDALIMAB
     Indication: Adenocarcinoma
     Dosage: 10 MICROGRAM/KILOGRAM, Q2W
     Dates: start: 20230511, end: 20230511
  3. VUDALIMAB [Suspect]
     Active Substance: VUDALIMAB
     Dosage: 10 MICROGRAM/KILOGRAM, Q2W
     Dates: start: 20230525, end: 20230525
  4. VUDALIMAB [Suspect]
     Active Substance: VUDALIMAB
     Dosage: 10 MICROGRAM/KILOGRAM, Q2W
     Dates: start: 20230623, end: 20230623
  5. VUDALIMAB [Suspect]
     Active Substance: VUDALIMAB
     Dosage: 10 MICROGRAM/KILOGRAM, Q2W
     Dates: start: 20230706, end: 20230706
  6. VUDALIMAB [Suspect]
     Active Substance: VUDALIMAB
     Dosage: 10 MICROGRAM/KILOGRAM, Q2W
     Dates: start: 20230720, end: 20230720
  7. VUDALIMAB [Suspect]
     Active Substance: VUDALIMAB
     Dosage: 10 MICROGRAM/KILOGRAM, Q2W
     Dates: start: 20230804, end: 20230804
  8. DOCETAXEL [Suspect]
     Active Substance: DOCETAXEL
     Indication: Adenocarcinoma
     Dosage: 75 MICROGRAM/SQ. METER, Q3W
     Dates: start: 20230511, end: 20230511
  9. DOCETAXEL [Suspect]
     Active Substance: DOCETAXEL
     Dosage: 75 MICROGRAM/SQ. METER, Q3W
     Dates: start: 20230601, end: 20230601
  10. DOCETAXEL [Suspect]
     Active Substance: DOCETAXEL
     Dosage: 75 MICROGRAM/SQ. METER, Q3W
     Dates: start: 20230623, end: 20230623
  11. DOCETAXEL [Suspect]
     Active Substance: DOCETAXEL
     Dosage: 75 MICROGRAM/SQ. METER, Q3W
     Dates: start: 20230714, end: 20230714
  12. DOCETAXEL [Suspect]
     Active Substance: DOCETAXEL
     Dosage: 75 MICROGRAM/SQ. METER, Q3W
     Dates: start: 20230807, end: 20230807
  13. DULOXETINE [Concomitant]
     Active Substance: DULOXETINE
     Route: 065
  14. GABAPENTIN [Concomitant]
     Active Substance: GABAPENTIN
     Route: 065
  15. DECADRON [Concomitant]
     Active Substance: DEXAMETHASONE
  16. REVATIO [Concomitant]
     Active Substance: SILDENAFIL CITRATE
     Route: 065
  17. TAMSULOSIN [Concomitant]
     Active Substance: TAMSULOSIN
     Route: 065
  18. ACETAMINOPHEN [Concomitant]
     Active Substance: ACETAMINOPHEN
  19. OXYCODONE [Concomitant]
     Active Substance: OXYCODONE
  20. ADVIL [Concomitant]
     Active Substance: IBUPROFEN
  21. ZOFRAN [Concomitant]
     Active Substance: ONDANSETRON HYDROCHLORIDE
  22. CALCIUM CARBONATE\VITAMIN D [Concomitant]
     Active Substance: CALCIUM CARBONATE\VITAMIN D
  23. DOCONEXENT [Concomitant]
     Active Substance: DOCONEXENT
  24. SODIUM CHLORIDE [Concomitant]
     Active Substance: SODIUM CHLORIDE
     Dates: start: 20230720, end: 20230720
  25. KENALOG [Concomitant]
     Active Substance: TRIAMCINOLONE ACETONIDE
  26. DICLOFENAC [Concomitant]
     Active Substance: DICLOFENAC

REACTIONS (11)
  - Neutrophil count decreased [Unknown]
  - Hypokalaemia [Unknown]
  - Myalgia [Unknown]
  - Blood lactate dehydrogenase increased [Unknown]
  - Pruritus [Unknown]
  - White blood cell count decreased [Unknown]
  - Platelet count decreased [Unknown]
  - Peripheral sensory neuropathy [Unknown]
  - Peroneal nerve palsy [Unknown]
  - Cellulitis [Unknown]
  - Infusion related reaction [Unknown]
